FAERS Safety Report 19225235 (Version 2)
Quarter: 2021Q2

REPORT INFORMATION
  Report Type: Spontaneous
  Country: US (occurrence: US)
  Receive Date: 20210506
  Receipt Date: 20210616
  Transmission Date: 20210717
  Serious: No
  Sender: FDA-Public Use
  Company Number: US-ASTRAZENECA-2021A313941

PATIENT
  Age: 67 Year
  Sex: Female
  Weight: 65.8 kg

DRUGS (13)
  1. OXYBUTYNIN. [Concomitant]
     Active Substance: OXYBUTYNIN CHLORIDE
     Indication: MICTURITION DISORDER
     Dosage: 5 MG, ONCE, TWICE DAILY
  2. LEVOTHYROXINE. [Concomitant]
     Active Substance: LEVOTHYROXINE
  3. NOVOLOG [Concomitant]
     Active Substance: INSULIN ASPART
     Indication: DIABETES MELLITUS
     Dosage: 18USP UNITS TWO TIMES A DAY
  4. HUMALOG [Concomitant]
     Active Substance: INSULIN LISPRO
     Indication: TYPE 2 DIABETES MELLITUS
     Dosage: 70/30 2 TIMES A DAY, 18 UNITS PER INJECTION
  5. ATORVASTATIN [Concomitant]
     Active Substance: ATORVASTATIN
     Indication: BLOOD CHOLESTEROL
     Dosage: 40 MG, ORAL, AT BEDTIME
  6. PERMADONE [Concomitant]
     Indication: BLOOD OESTROGEN ABNORMAL
     Dosage: 50 MG 4 TAB, 3 TIMES DAILY, 10 YEARS AGO, ORAL
  7. GLUCOSAMINE/CHONDROITIN [Concomitant]
     Indication: PROPHYLAXIS
     Dosage: 1500MG /1200MG
     Route: 048
  8. VITAMIN B3 [Concomitant]
     Active Substance: NIACIN
  9. BYDUREON BCISE [Suspect]
     Active Substance: EXENATIDE
     Indication: DIABETES MELLITUS
     Route: 065
     Dates: start: 20210304
  10. ALENDRONATE SODIUM. [Concomitant]
     Active Substance: ALENDRONATE SODIUM
     Indication: OSTEOPOROSIS
  11. CALCIUM/VIT D3 [Concomitant]
     Dosage: 600/800 IU
     Route: 048
  12. VITAMIN C [Concomitant]
     Active Substance: ASCORBIC ACID
  13. LEVOTHYROXINE. [Concomitant]
     Active Substance: LEVOTHYROXINE

REACTIONS (7)
  - Injection site bruising [Not Recovered/Not Resolved]
  - Injection site nodule [Unknown]
  - Injection site pruritus [Unknown]
  - Injection site pain [Not Recovered/Not Resolved]
  - Needle issue [Unknown]
  - Wrong technique in device usage process [Unknown]
  - Injection site mass [Not Recovered/Not Resolved]

NARRATIVE: CASE EVENT DATE: 2021
